FAERS Safety Report 7586487-4 (Version None)
Quarter: 2011Q3

REPORT INFORMATION
  Report Type: 
  Country: None (occurrence: None)
  Receive Date: 20110701
  Receipt Date: 20110621
  Transmission Date: 20111222
  Serious: Yes (Hospitalization)
  Sender: FDA-Public Use
  Company Number: FR-ROCHE-673390

PATIENT
  Sex: Female
  Weight: 54.5 kg

DRUGS (6)
  1. PEMETREXED [Suspect]
     Indication: NON-SMALL CELL LUNG CANCER
     Route: 042
     Dates: start: 20090903, end: 20091102
  2. BEVACIZUMAB [Suspect]
     Indication: NON-SMALL CELL LUNG CANCER
     Route: 042
     Dates: start: 20090903, end: 20091102
  3. BEVACIZUMAB [Suspect]
     Route: 042
     Dates: start: 20091110
  4. CISPLATIN [Suspect]
     Route: 042
     Dates: start: 20091110
  5. PEMETREXED [Suspect]
     Route: 042
     Dates: start: 20091110
  6. CISPLATIN [Suspect]
     Route: 042
     Dates: start: 20090903, end: 20091102

REACTIONS (3)
  - ANAEMIA [None]
  - NEUTROPENIA [None]
  - VASCULITIS NECROTISING [None]
